FAERS Safety Report 17954427 (Version 4)
Quarter: 2020Q3

REPORT INFORMATION
  Report Type: Spontaneous
  Country: IE (occurrence: IE)
  Receive Date: 20200629
  Receipt Date: 20200720
  Transmission Date: 20201103
  Serious: Yes (Hospitalization, Other)
  Sender: FDA-Public Use
  Company Number: IE-CELLTRION INC.-2020IE023389

PATIENT

DRUGS (5)
  1. BENDAMUSTINE HYDROCHLORIDE. [Suspect]
     Active Substance: BENDAMUSTINE HYDROCHLORIDE
     Indication: MANTLE CELL LYMPHOMA
     Dosage: 90 MG/M2, CYCLIC (ON DAYS 1 AND 2 OF 28 DAY CYCLE)
     Route: 042
  2. BENDAMUSTINE HYDROCHLORIDE. [Suspect]
     Active Substance: BENDAMUSTINE HYDROCHLORIDE
     Dosage: 90 MG/M2, CYCLIC (ON DAYS 1 AND 2 OF 28 DAY CYCLE)
     Route: 042
  3. BENDAMUSTINE HYDROCHLORIDE. [Suspect]
     Active Substance: BENDAMUSTINE HYDROCHLORIDE
     Dosage: 90 MG/M2, CYCLIC (ON DAYS 1 AND 2 OF 28 DAY CYCLE)
     Route: 042
  4. RITUXIMAB (UNKNOWN) [Suspect]
     Active Substance: RITUXIMAB
     Indication: MANTLE CELL LYMPHOMA
     Dosage: 375 MG/M2, CYCLIC (DAY 1 OF A 28?DAY CYCLE)
     Route: 042
  5. BENDAMUSTINE HYDROCHLORIDE. [Suspect]
     Active Substance: BENDAMUSTINE HYDROCHLORIDE
     Dosage: 90 MG/M2, CYCLIC (ON DAYS 1 AND 2 OF 28 DAY CYCLE)
     Route: 042

REACTIONS (7)
  - Therapeutic response decreased [Unknown]
  - Drug tolerance decreased [Unknown]
  - Underdose [Unknown]
  - Pneumonia [Unknown]
  - Arthritis bacterial [Unknown]
  - Off label use [Unknown]
  - Osteomyelitis [Unknown]
